FAERS Safety Report 5061835-8 (Version None)
Quarter: 2006Q3

REPORT INFORMATION
  Report Type: 
  Country: None (occurrence: None)
  Receive Date: 20060703
  Receipt Date: 20060202
  Transmission Date: 20061208
  Serious: No
  Sender: FDA-Public Use
  Company Number: 2006S1001021

PATIENT
  Age: 27 Year
  Sex: Female

DRUGS (3)
  1. CLOZAPINE [Suspect]
     Indication: SCHIZOPHRENIA, PARANOID TYPE
     Dosage: 100 MG;TID;ORAL
     Route: 048
     Dates: start: 20040905
  2. CLONAZEPAM [Concomitant]
  3. ESCITALOPRAM [Concomitant]

REACTIONS (1)
  - GRANULOCYTOPENIA [None]
